FAERS Safety Report 9503243 (Version 1)
Quarter: 2013Q1

REPORT INFORMATION
  Report Type: Spontaneous
  Country: US (occurrence: None)
  Receive Date: 20130107
  Receipt Date: 20130107
  Transmission Date: 20140127
  Serious: No
  Sender: FDA-Public Use
  Company Number: PHEH2012US017731

PATIENT
  Age: 34 Year
  Sex: Female

DRUGS (5)
  1. GILENYA (FTY) CAPSULE, 0.5MG [Suspect]
     Dosage: 1 DF, QD, ORAL
     Route: 048
  2. PAROXETINE (PAROXETINE) [Concomitant]
  3. LOESTRIN FE (ETHINYLESTRADIOL, FERROUS FUMARATE, NORETHISTERONE ACETATE) TABLET [Concomitant]
  4. TRAZODONE (TRAZODONE) TABLET [Concomitant]
  5. VITAMIN B2 (RIBOFLAVIN) TABLET [Concomitant]

REACTIONS (8)
  - Night sweats [None]
  - Memory impairment [None]
  - Hot flush [None]
  - Disturbance in attention [None]
  - Palpitations [None]
  - Paraesthesia [None]
  - Vision blurred [None]
  - Dizziness [None]
